FAERS Safety Report 25842199 (Version 1)
Quarter: 2025Q3

REPORT INFORMATION
  Report Type: Spontaneous
  Country: CA (occurrence: CA)
  Receive Date: 20250924
  Receipt Date: 20250924
  Transmission Date: 20251021
  Serious: Yes (Hospitalization)
  Sender: MYLAN
  Company Number: CA-MYLANLABS-2025M1080443

PATIENT
  Sex: Male

DRUGS (2)
  1. REVATIO [Suspect]
     Active Substance: SILDENAFIL CITRATE
     Indication: Pulmonary hypertension
     Dosage: 4 MILLIGRAM, Q8H (IN 8 HOUR)
  2. REVATIO [Suspect]
     Active Substance: SILDENAFIL CITRATE
     Indication: Neonatal respiratory distress syndrome

REACTIONS (2)
  - Hospitalisation [Unknown]
  - Off label use [Unknown]
